FAERS Safety Report 19036994 (Version 1)
Quarter: 2021Q1

REPORT INFORMATION
  Report Type: Spontaneous
  Country: US (occurrence: US)
  Receive Date: 20210322
  Receipt Date: 20210322
  Transmission Date: 20210420
  Serious: No
  Sender: FDA-Public Use
  Company Number: US-ORGANON-O2103USA001828

PATIENT
  Sex: Male

DRUGS (5)
  1. HYDROCORTISONE. [Concomitant]
     Active Substance: HYDROCORTISONE
     Dosage: 10 MILLIGRAM (MG) AM AND 5 MG PM
  2. SYNTHROID [Concomitant]
     Active Substance: LEVOTHYROXINE SODIUM
     Dosage: 125 MICROGRAM, QD
  3. PREGNYL [Suspect]
     Active Substance: CHORIOGONADOTROPIN ALFA
     Indication: PITUITARY TUMOUR REMOVAL
     Dosage: 1000 UNITS 3 TIMES A WEEK (TIW)
     Route: 030
     Dates: start: 201708, end: 202006
  4. GONAL?F [Suspect]
     Active Substance: FOLLITROPIN
     Dosage: UNK
     Dates: start: 201708, end: 202006
  5. STERILE WATER [Suspect]
     Active Substance: WATER
     Dosage: UNK

REACTIONS (3)
  - Somnolence [Not Recovered/Not Resolved]
  - Blood testosterone decreased [Not Recovered/Not Resolved]
  - Fatigue [Not Recovered/Not Resolved]
